FAERS Safety Report 10443569 (Version 1)
Quarter: 2014Q3

REPORT INFORMATION
  Report Type: Spontaneous
  Country: US (occurrence: US)
  Receive Date: 20140910
  Receipt Date: 20140910
  Transmission Date: 20150326
  Serious: No
  Sender: FDA-Public Use
  Company Number: US-BIOGENIDEC-2014BI088964

PATIENT
  Age: 33 Year
  Sex: Female

DRUGS (1)
  1. TECFIDERA [Suspect]
     Active Substance: DIMETHYL FUMARATE
     Indication: MULTIPLE SCLEROSIS
     Route: 048
     Dates: start: 20140812

REACTIONS (10)
  - Drug dose omission [Recovered/Resolved]
  - Faecal volume increased [Unknown]
  - Nausea [Recovered/Resolved]
  - Prescribed underdose [Unknown]
  - Flushing [Recovered/Resolved]
  - Malaise [Unknown]
  - Helicobacter infection [Recovered/Resolved]
  - Dyspepsia [Unknown]
  - Erythema [Recovered/Resolved]
  - Abdominal pain upper [Recovered/Resolved]

NARRATIVE: CASE EVENT DATE: 2014
